FAERS Safety Report 8528330-2 (Version None)
Quarter: 2012Q3

REPORT INFORMATION
  Report Type: 
  Country: None (occurrence: None)
  Receive Date: 20120722
  Receipt Date: 20120711
  Transmission Date: 20120928
  Serious: Yes (Hospitalization, Other)
  Sender: FDA-Public Use
  Company Number: US-009507513-1203USA00764

PATIENT

DRUGS (5)
  1. ALENDRONATE SODIUM [Suspect]
     Indication: RHEUMATOID ARTHRITIS
  2. FOSAMAX [Suspect]
     Indication: RHEUMATOID ARTHRITIS
     Dosage: 70 MG, QW
     Route: 048
     Dates: start: 19990101, end: 20081201
  3. ETODOLAC [Concomitant]
     Indication: RHEUMATOID ARTHRITIS
     Dosage: UNK
     Dates: start: 20040826
  4. ALENDRONATE SODIUM [Suspect]
     Indication: OSTEOPENIA
     Dosage: 70 MG, QW
     Dates: start: 20090220, end: 20100524
  5. FOSAMAX [Suspect]
     Indication: OSTEOPENIA
     Dosage: 10 MG, UNK
     Route: 048
     Dates: start: 19990101, end: 20081201

REACTIONS (18)
  - FEMUR FRACTURE [None]
  - MUSCLE DISORDER [None]
  - OSTEOARTHRITIS [None]
  - CONTUSION [None]
  - POST PROCEDURAL HAEMORRHAGE [None]
  - ABDOMINAL PAIN UPPER [None]
  - CORONARY ARTERIAL STENT INSERTION [None]
  - FOOT FRACTURE [None]
  - FALL [None]
  - BURSITIS [None]
  - CEREBROVASCULAR ACCIDENT [None]
  - BLOOD CHOLESTEROL INCREASED [None]
  - BACK INJURY [None]
  - BACK PAIN [None]
  - TOOTH INFECTION [None]
  - HYPERTENSION [None]
  - CHEST PAIN [None]
  - OFF LABEL USE [None]
